FAERS Safety Report 6056465-5 (Version None)
Quarter: 2009Q1

REPORT INFORMATION
  Report Type: 
  Country: None (occurrence: None)
  Receive Date: 20090126
  Receipt Date: 20090126
  Transmission Date: 20090719
  Serious: Yes (Disabling)
  Sender: FDA-Public Use
  Company Number: None

PATIENT
  Age: 63 Year
  Sex: Male
  Weight: 99.7913 kg

DRUGS (1)
  1. FLOMAX [Suspect]
     Indication: PROSTATOMEGALY
     Dosage: 0.4 MG DAILY
     Dates: start: 20080110, end: 20090109

REACTIONS (3)
  - BLINDNESS TRANSIENT [None]
  - CATARACT OPERATION COMPLICATION [None]
  - VISION BLURRED [None]
